FAERS Safety Report 7543902-X (Version None)
Quarter: 2011Q2

REPORT INFORMATION
  Report Type: 
  Country: None (occurrence: None)
  Receive Date: 20110613
  Receipt Date: 20110531
  Transmission Date: 20111010
  Serious: Yes (Hospitalization, Other)
  Sender: FDA-Public Use
  Company Number: US-CELGENEUS-163-21880-11060324

PATIENT
  Sex: Female

DRUGS (3)
  1. STEROIDS [Concomitant]
     Route: 065
  2. REVLIMID [Suspect]
     Indication: MULTIPLE MYELOMA
     Dosage: 25 MILLIGRAM
     Route: 048
     Dates: start: 20110427
  3. WHOLE BLOOD [Concomitant]
     Route: 051
     Dates: start: 20110101, end: 20110101

REACTIONS (5)
  - ANAEMIA [None]
  - DEHYDRATION [None]
  - RASH [None]
  - BLOOD GLUCOSE INCREASED [None]
  - ABDOMINAL ABSCESS [None]
